FAERS Safety Report 9180095 (Version 1)
Quarter: 2013Q1

REPORT INFORMATION
  Report Type: Spontaneous
  Country: IN (occurrence: IN)
  Receive Date: 20130321
  Receipt Date: 20130321
  Transmission Date: 20140127
  Serious: Yes (Other)
  Sender: FDA-Public Use
  Company Number: PHHY2013IN026087

PATIENT
  Age: 45 Year
  Sex: Female

DRUGS (1)
  1. FLUVOXAMINE [Suspect]
     Dosage: UNK

REACTIONS (1)
  - Drug intolerance [Unknown]
